FAERS Safety Report 18177841 (Version 1)
Quarter: 2020Q3

REPORT INFORMATION
  Report Type: Report from Study
  Country: None (occurrence: US)
  Receive Date: 20200821
  Receipt Date: 20200821
  Transmission Date: 20201103
  Serious: Yes (Hospitalization, Other)
  Sender: FDA-Public Use
  Company Number: US-ABBVIE-20K-163-3528579-00

PATIENT
  Age: 11 Year
  Sex: Male

DRUGS (1)
  1. IMBRUVICA [Suspect]
     Active Substance: IBRUTINIB
     Indication: CHRONIC GRAFT VERSUS HOST DISEASE
     Route: 048

REACTIONS (5)
  - Lumbar puncture [Unknown]
  - Central venous catheterisation [Unknown]
  - Skin cancer metastatic [Unknown]
  - Off label use [Unknown]
  - Unevaluable event [Unknown]

NARRATIVE: CASE EVENT DATE: 202008
